FAERS Safety Report 6372867-1 (Version None)
Quarter: 2009Q3

REPORT INFORMATION
  Report Type: 
  Country: None (occurrence: None)
  Receive Date: 20090924
  Receipt Date: 20090417
  Transmission Date: 20100115
  Serious: No
  Sender: FDA-Public Use
  Company Number: US-ASTRAZENECA-2008UW26488

PATIENT
  Age: 593 Month
  Sex: Female
  Weight: 83.9 kg

DRUGS (3)
  1. SEROQUEL [Suspect]
     Indication: BIPOLAR DISORDER
     Dosage: 50 TO 300 MG
     Route: 048
     Dates: start: 20050101
  2. RISPERDAL [Concomitant]
     Dates: start: 20050101
  3. VALIUM [Concomitant]
     Dates: start: 20070101

REACTIONS (2)
  - DIABETES MELLITUS [None]
  - UTERINE DISORDER [None]
